FAERS Safety Report 8833254 (Version 6)
Quarter: 2013Q3

REPORT INFORMATION
  Report Type: Report from Study
  Country: IT (occurrence: IT)
  Receive Date: 20121010
  Receipt Date: 20130905
  Transmission Date: 20140515
  Serious: Yes (Hospitalization)
  Sender: FDA-Public Use
  Company Number: PHHO2012IT014600

PATIENT
  Sex: 0

DRUGS (14)
  1. AMN107 [Suspect]
     Indication: CHRONIC MYELOID LEUKAEMIA
     Dosage: 300 MG, BID
     Route: 048
     Dates: start: 20101123, end: 20121218
  2. EUTIROX [Concomitant]
     Indication: HYPOTHYROIDISM
     Dosage: 75 MG, QD
     Route: 048
     Dates: start: 2006
  3. CARDICOR [Concomitant]
     Indication: HYPERTENSION
     Dosage: 25 MG, UNK
     Route: 048
     Dates: start: 20120822, end: 20121218
  4. FELODIPINE [Concomitant]
     Indication: ANGINA UNSTABLE
     Dosage: 10 MG, UNK
     Route: 048
     Dates: start: 20120822, end: 20121218
  5. RIVOTRIL [Concomitant]
     Indication: ANXIETY
     Dosage: 0.5 MG, QD
     Route: 048
     Dates: start: 20101002
  6. TOTALIP [Concomitant]
     Indication: DYSLIPIDAEMIA
     Dosage: 40 MG, UNK
     Route: 048
     Dates: start: 20120719, end: 20121218
  7. TRIATEC [Concomitant]
     Indication: HYPERTENSION
     Dosage: 10 MG, UNK
     Route: 048
     Dates: start: 20120822, end: 20121203
  8. TRIATEC [Concomitant]
     Dosage: 20 MG, UNK
     Route: 048
     Dates: end: 20121218
  9. PRASUGREL [Concomitant]
     Indication: ANTIPLATELET THERAPY
     Dosage: 10 MG, UNK
     Route: 048
     Dates: start: 20120822, end: 20121203
  10. PRASUGREL [Concomitant]
     Dosage: 20 MG, UNK
     Route: 048
     Dates: end: 20121218
  11. LANSOPRAZOLE [Concomitant]
     Indication: PROPHYLAXIS
     Dosage: 30 MG, QD
     Route: 048
     Dates: start: 20120706
  12. CARDIOASPIRIN [Concomitant]
     Indication: ANGINA UNSTABLE
     Dosage: 100 MG, UNK
     Route: 048
     Dates: start: 20120822, end: 20121218
  13. BISOPROLOL [Concomitant]
  14. RAMIPRIL [Concomitant]

REACTIONS (1)
  - Acute coronary syndrome [Recovered/Resolved with Sequelae]
